FAERS Safety Report 4770035-8 (Version None)
Quarter: 2005Q3

REPORT INFORMATION
  Report Type: 
  Country: None (occurrence: None)
  Receive Date: 20050915
  Receipt Date: 20050104
  Transmission Date: 20060218
  Serious: No
  Sender: FDA-Public Use
  Company Number: US-GLAXOSMITHKLINE-A0539379A

PATIENT
  Age: 79 Year
  Sex: Female

DRUGS (1)
  1. ABREVA [Suspect]

REACTIONS (3)
  - FACIAL PAIN [None]
  - FOREIGN BODY SENSATION IN EYES [None]
  - HYPERSENSITIVITY [None]
